FAERS Safety Report 25073058 (Version 1)
Quarter: 2025Q1

REPORT INFORMATION
  Report Type: Report from Study
  Country: US (occurrence: US)
  Receive Date: 20250313
  Receipt Date: 20250313
  Transmission Date: 20250409
  Serious: Yes (Hospitalization, Other)
  Sender: GILEAD
  Company Number: US-GILEAD-2025-0706542

PATIENT
  Age: 16 Year
  Sex: Female

DRUGS (5)
  1. AZTREONAM LYSINE [Suspect]
     Active Substance: AZTREONAM LYSINE
     Indication: Respiratory tract malformation
     Dosage: INHALE 75MG VIA NEBULIZER 3 TIMES DAILY AT LEAST 4 HOURS APART FOR 28 DAYS ON AND 28 DAYS OFF
     Route: 055
     Dates: start: 20250116
  2. AZTREONAM LYSINE [Suspect]
     Active Substance: AZTREONAM LYSINE
     Indication: Lung disorder
  3. RIBOFLAVIN [Concomitant]
     Active Substance: RIBOFLAVIN
     Indication: Product used for unknown indication
  4. BUDESONIDE [Concomitant]
     Active Substance: BUDESONIDE
     Indication: Product used for unknown indication
  5. COLISTIMETHATE [Concomitant]
     Active Substance: COLISTIMETHATE SODIUM
     Indication: Product used for unknown indication

REACTIONS (2)
  - Seizure [Not Recovered/Not Resolved]
  - Off label use [Not Recovered/Not Resolved]
